FAERS Safety Report 4631866-8 (Version None)
Quarter: 2005Q2

REPORT INFORMATION
  Report Type: 
  Country: None (occurrence: None)
  Receive Date: 20050331
  Receipt Date: 20050228
  Transmission Date: 20051028
  Serious: Yes (Hospitalization)
  Sender: FDA-Public Use
  Company Number: 05P-163-0292167-00

PATIENT
  Age: 53 Year
  Sex: Male

DRUGS (2)
  1. BIAXIN XL [Suspect]
     Indication: SINUSITIS
     Dosage: 500 MG, 2 IN 1 D, PER ORAL (SEE IMAGE)
     Route: 048
     Dates: start: 20050224, end: 20050226
  2. CLAVULIN [Concomitant]

REACTIONS (3)
  - DYSGEUSIA [None]
  - PSYCHOTIC DISORDER [None]
  - SPEECH DISORDER [None]
